FAERS Safety Report 15741361 (Version 1)
Quarter: 2018Q4

REPORT INFORMATION
  Report Type: Report from Study
  Country: FR (occurrence: FR)
  Receive Date: 20181219
  Receipt Date: 20181219
  Transmission Date: 20190205
  Serious: Yes (Death, Other)
  Sender: FDA-Public Use
  Company Number: FR-JAZZ-2018-FR-009573

PATIENT
  Age: 60 Year
  Sex: Male
  Weight: 83 kg

DRUGS (7)
  1. VFEND [Concomitant]
     Active Substance: VORICONAZOLE
     Indication: PYREXIA
     Dosage: 400 MG, QD
     Dates: start: 20150825, end: 20151214
  2. ZELITREX [Concomitant]
     Active Substance: VALACYCLOVIR HYDROCHLORIDE
     Indication: INFECTION PROPHYLAXIS
     Dosage: 1 G, QD
     Route: 048
     Dates: start: 20150730, end: 20151214
  3. DELURSAN [Concomitant]
     Active Substance: URSODIOL
     Indication: PROPHYLAXIS
     Dosage: UNK
     Route: 048
     Dates: start: 20150730, end: 20151214
  4. CYCLOSPORIN [Concomitant]
     Active Substance: CYCLOSPORINE
     Indication: PROPHYLAXIS AGAINST GRAFT VERSUS HOST DISEASE
     Dosage: 125 MG, QD
     Route: 048
     Dates: start: 20150804, end: 20151028
  5. DEFITELIO [Suspect]
     Active Substance: DEFIBROTIDE SODIUM
     Indication: VENOOCCLUSIVE DISEASE
  6. TIENAM [Concomitant]
     Active Substance: CILASTATIN SODIUM\IMIPENEM
     Indication: PYREXIA
     Dosage: 3 G, QD
     Dates: start: 20150818
  7. DEFITELIO [Suspect]
     Active Substance: DEFIBROTIDE SODIUM
     Indication: PROPHYLAXIS
     Dosage: 25 MG/KG, QD
     Route: 042
     Dates: start: 20150731, end: 20150826

REACTIONS (3)
  - Toxicity to various agents [Unknown]
  - Cardiac failure [Unknown]
  - Death [Fatal]

NARRATIVE: CASE EVENT DATE: 20150825
